FAERS Safety Report 14528632 (Version 2)
Quarter: 2018Q1

REPORT INFORMATION
  Report Type: Spontaneous
  Country: MX (occurrence: MX)
  Receive Date: 20180214
  Receipt Date: 20180304
  Transmission Date: 20180509
  Serious: Yes (Other)
  Sender: FDA-Public Use
  Company Number: MX-ACCORD-063214

PATIENT
  Age: 57 Year
  Sex: Female

DRUGS (8)
  1. METHOTREXATE. [Suspect]
     Active Substance: METHOTREXATE
     Indication: JUVENILE IDIOPATHIC ARTHRITIS
     Dates: start: 199001, end: 201709
  2. OMEPRAZOLE. [Concomitant]
     Active Substance: OMEPRAZOLE
  3. KETOROLAC [Concomitant]
     Active Substance: KETOROLAC\KETOROLAC TROMETHAMINE
  4. PARACETAMOL [Concomitant]
     Active Substance: ACETAMINOPHEN
  5. CALCIUM CARBONATE/CALCIUM LACTOGLUCONATE [Concomitant]
  6. PREDNISONE. [Concomitant]
     Active Substance: PREDNISONE
  7. MELOXICAM/METHOCARBAMOL [Concomitant]
  8. FOLATE SODIUM/FOLIC ACID [Concomitant]

REACTIONS (7)
  - Mucosal inflammation [Recovered/Resolved]
  - Mucosal atrophy [Recovered/Resolved]
  - Malnutrition [Recovered/Resolved]
  - Hepatic function abnormal [Recovered/Resolved]
  - White blood cell count decreased [Recovered/Resolved]
  - Oral candidiasis [Recovered/Resolved]
  - Lymphocyte count decreased [Recovered/Resolved]

NARRATIVE: CASE EVENT DATE: 2016
